FAERS Safety Report 4479599-5 (Version None)
Quarter: 2004Q4

REPORT INFORMATION
  Report Type: 
  Country: None (occurrence: None)
  Receive Date: 20041018
  Receipt Date: 20041005
  Transmission Date: 20050328
  Serious: Yes (Hospitalization)
  Sender: FDA-Public Use
  Company Number: 2004PK01659

PATIENT
  Age: 89 Year
  Sex: Female
  Weight: 66 kg

DRUGS (6)
  1. METOPROLOL SUCCINATE [Suspect]
     Indication: TACHYCARDIA
     Dosage: 47.5 MG DAILY PO
     Route: 048
     Dates: start: 20031201
  2. DIGITOXIN TAB [Suspect]
     Indication: TACHYCARDIA
     Dosage: 0.07 MG DAILY PO
     Route: 048
     Dates: start: 20031201, end: 20040323
  3. APROVEL [Concomitant]
  4. ARELIX MITE [Concomitant]
  5. DELIX [Concomitant]
  6. GODAMED [Concomitant]

REACTIONS (7)
  - ATRIAL FIBRILLATION [None]
  - BLOOD PRESSURE INCREASED [None]
  - BRADYCARDIA [None]
  - CAROTID ARTERY OCCLUSION [None]
  - DRUG INTERACTION [None]
  - OVERDOSE [None]
  - SYNCOPE [None]
